FAERS Safety Report 5216583-8 (Version None)
Quarter: 2007Q1

REPORT INFORMATION
  Report Type: 
  Country: None (occurrence: None)
  Receive Date: 20061130
  Receipt Date: 20060814
  Transmission Date: 20070707
  Serious: Yes (Other)
  Sender: FDA-Public Use
  Company Number: US200608002892

PATIENT
  Age: 45 Year
  Sex: Male
  Weight: 154.2 kg

DRUGS (3)
  1. ZYPREXA [Suspect]
     Dosage: 30 MG
     Dates: start: 20000101, end: 20020101
  2. WELLBUTRIN (IBUPROPION HYDROCHLORIDE) [Concomitant]
  3. GEODON [Concomitant]

REACTIONS (12)
  - BILIARY TRACT DISORDER [None]
  - BLOOD CHOLESTEROL ABNORMAL [None]
  - BLOOD TRIGLYCERIDES INCREASED [None]
  - DIABETES MELLITUS [None]
  - GLUCOSE TOLERANCE IMPAIRED [None]
  - HYPERGLYCAEMIC HYPEROSMOLAR NONKETOTIC SYNDROME [None]
  - HYPERTENSION [None]
  - MUMPS [None]
  - OBESITY [None]
  - PANCREATITIS [None]
  - PRESCRIBED OVERDOSE [None]
  - VISION BLURRED [None]
